FAERS Safety Report 16344753 (Version 1)
Quarter: 2019Q2

REPORT INFORMATION
  Report Type: Report from Study
  Country: SI (occurrence: SI)
  Receive Date: 20190522
  Receipt Date: 20190522
  Transmission Date: 20190711
  Serious: Yes (Disabling)
  Sender: FDA-Public Use
  Company Number: SI-AMGEN-SVNNI2019055150

PATIENT
  Age: 43 Year
  Sex: Female

DRUGS (6)
  1. ERENUMAB [Suspect]
     Active Substance: ERENUMAB
     Indication: MIGRAINE PROPHYLAXIS
     Dosage: UNK
     Route: 065
  2. ERENUMAB [Suspect]
     Active Substance: ERENUMAB
     Indication: MIGRAINE
     Dosage: 140 MILLIGRAM, UNK
     Route: 058
     Dates: start: 20190111
  3. ELETRIPTAN. [Concomitant]
     Active Substance: ELETRIPTAN
     Indication: MIGRAINE
     Dosage: 11 DOSAGE FORM, QMO
     Route: 065
  4. SUMATRIPTAN. [Concomitant]
     Active Substance: SUMATRIPTAN
     Indication: MIGRAINE
     Dosage: 11 DOSAGE FORM, QMO,  (11 TABLETS)
     Route: 065
  5. ZOLMITRIPTAN. [Concomitant]
     Active Substance: ZOLMITRIPTAN
     Indication: MIGRAINE
     Dosage: 11 DOSAGE FORM, QMO
     Route: 065
  6. FROVATRIPTAN. [Concomitant]
     Active Substance: FROVATRIPTAN
     Indication: MIGRAINE
     Dosage: 11 DOSAGE FORM, QMO
     Route: 065

REACTIONS (7)
  - Taste disorder [Unknown]
  - Abdominal wall haematoma [Recovering/Resolving]
  - Rhinorrhoea [Unknown]
  - Arthralgia [Unknown]
  - Myalgia [Unknown]
  - Injection site haematoma [Recovered/Resolved]
  - Muscle rupture [Recovering/Resolving]

NARRATIVE: CASE EVENT DATE: 20190211
